FAERS Safety Report 9775419 (Version 2)
Quarter: 2013Q4

REPORT INFORMATION
  Report Type: Spontaneous
  Country: BR (occurrence: BR)
  Receive Date: 20131220
  Receipt Date: 20131224
  Transmission Date: 20140711
  Serious: No
  Sender: FDA-Public Use
  Company Number: BR-NAPPMUNDI-GBR-2013-0016686

PATIENT
  Age: 56 Year
  Sex: Male

DRUGS (4)
  1. OXYCODONE HCL IR CAPSULE 10 MG [Suspect]
     Indication: PROCEDURAL PAIN
     Dosage: 10 MG, BID
     Route: 048
     Dates: start: 20130924, end: 201309
  2. ZINACEF                            /00454601/ [Concomitant]
  3. TRAMAL [Concomitant]
  4. KETOPROFEN [Concomitant]

REACTIONS (2)
  - Hyperaemia [Recovered/Resolved]
  - Papule [Recovered/Resolved]
